FAERS Safety Report 6469860-7 (Version None)
Quarter: 2009Q4

REPORT INFORMATION
  Report Type: 
  Country: None (occurrence: None)
  Receive Date: 20091203
  Receipt Date: 20080115
  Transmission Date: 20100525
  Serious: Yes (Death, Hospitalization, Other)
  Sender: FDA-Public Use
  Company Number: US-ELI_LILLY_AND_COMPANY-US200711005130

PATIENT
  Sex: Female

DRUGS (4)
  1. FORTEO [Suspect]
     Indication: BONE DISORDER
     Dates: start: 20050101, end: 20071101
  2. OXYGEN [Concomitant]
  3. XOPENEX [Concomitant]
     Indication: LUNG DISORDER
     Route: 055
  4. SPIRIVA [Concomitant]
     Indication: LUNG DISORDER

REACTIONS (6)
  - CARDIAC FAILURE [None]
  - HELICOBACTER GASTRITIS [None]
  - HYPERTENSION [None]
  - PNEUMONIA [None]
  - PULMONARY SEQUESTRATION [None]
  - SURGERY [None]
